FAERS Safety Report 5189711-0 (Version None)
Quarter: 2006Q4

REPORT INFORMATION
  Report Type: 
  Country: None (occurrence: None)
  Receive Date: 20061221
  Receipt Date: 20050829
  Transmission Date: 20070319
  Serious: No
  Sender: FDA-Public Use
  Company Number: US-AMGEN-US148283

PATIENT
  Age: 50 Year
  Sex: Male

DRUGS (5)
  1. ENBREL [Suspect]
     Indication: PSORIASIS
     Dates: start: 20050701
  2. TOPROL-XL [Concomitant]
     Route: 065
  3. CYCLOSERINE [Concomitant]
     Route: 065
  4. FLECAINIDE ACETATE [Concomitant]
     Route: 065
  5. ALTACE [Concomitant]
     Route: 065

REACTIONS (1)
  - OEDEMA PERIPHERAL [None]
